FAERS Safety Report 6212957-7 (Version None)
Quarter: 2009Q2

REPORT INFORMATION
  Report Type: 
  Country: None (occurrence: None)
  Receive Date: 20090603
  Receipt Date: 20090525
  Transmission Date: 20091009
  Serious: Yes (Hospitalization)
  Sender: FDA-Public Use
  Company Number: ZA-AVENTIS-200915439GDDC

PATIENT
  Sex: Female
  Weight: 1.37 kg

DRUGS (4)
  1. LANTUS [Suspect]
     Indication: DIABETIC RELATIVE
     Route: 064
     Dates: start: 20080914
  2. LANTUS [Suspect]
     Route: 064
     Dates: end: 20090128
  3. APIDRA [Suspect]
     Indication: DIABETIC RELATIVE
     Route: 064
     Dates: start: 20080914
  4. APIDRA [Suspect]
     Route: 064
     Dates: end: 20090128

REACTIONS (2)
  - DRUG EXPOSURE DURING PREGNANCY [None]
  - PREMATURE BABY [None]
